FAERS Safety Report 23793778 (Version 1)
Quarter: 2024Q2

REPORT INFORMATION
  Report Type: Report from Study
  Country: US (occurrence: US)
  Receive Date: 20240429
  Receipt Date: 20240429
  Transmission Date: 20240716
  Serious: Yes (Other)
  Sender: FDA-Public Use
  Company Number: US-GILEAD-2024-0670692

PATIENT
  Age: 61 Year
  Sex: Female

DRUGS (2)
  1. AMBRISENTAN [Suspect]
     Active Substance: AMBRISENTAN
     Indication: Pulmonary arterial hypertension
     Dosage: 10 MG, QD
     Route: 065
     Dates: start: 202001
  2. ADCIRCA [Concomitant]
     Active Substance: TADALAFIL
     Indication: Pulmonary arterial hypertension
     Dosage: 40 MG, QD
     Route: 065
     Dates: start: 202103

REACTIONS (12)
  - Myocardial infarction [Unknown]
  - Neck pain [Not Recovered/Not Resolved]
  - Arthralgia [Recovered/Resolved]
  - Pain in jaw [Recovered/Resolved]
  - Pain in extremity [Recovered/Resolved]
  - Hypoaesthesia [Recovered/Resolved]
  - Vomiting [Recovered/Resolved]
  - Visual impairment [Unknown]
  - Hypoacusis [Unknown]
  - Chest pain [Not Recovered/Not Resolved]
  - Nerve compression [Unknown]
  - Pain [Unknown]
